FAERS Safety Report 4315124-7 (Version None)
Quarter: 2004Q1

REPORT INFORMATION
  Report Type: 
  Country: None (occurrence: None)
  Receive Date: 20040309
  Receipt Date: 20040227
  Transmission Date: 20041129
  Serious: Yes (Hospitalization)
  Sender: FDA-Public Use
  Company Number: FR-JNJFOC-20040200987

PATIENT
  Age: 69 Year
  Sex: Male

DRUGS (5)
  1. REMICADE [Suspect]
     Indication: RHEUMATOID ARTHRITIS
     Dosage: 200 MG, 1 IN 8 WEEK, INTRAVENOUS
     Route: 042
     Dates: start: 20030528, end: 20031103
  2. METHOTREXATE [Suspect]
     Indication: RHEUMATOID ARTHRITIS
     Dosage: 10 MG/KG, 1 IN 1 WEEK
     Dates: start: 19960615, end: 20031231
  3. FOLIC ACID [Concomitant]
  4. PREDNISONE [Concomitant]
  5. ADALAT [Concomitant]

REACTIONS (2)
  - DRUG INTERACTION [None]
  - NON-HODGKIN'S LYMPHOMA [None]
